FAERS Safety Report 17777584 (Version 4)
Quarter: 2025Q3

REPORT INFORMATION
  Report Type: Report from Study
  Country: EU (occurrence: EU)
  Receive Date: 20200513
  Receipt Date: 20250819
  Transmission Date: 20251021
  Serious: Yes (Congenital Anomaly)
  Sender: TEVA
  Company Number: EU-TEVA-2020-FR-1233871

PATIENT

DRUGS (1)
  1. LEFLUNOMIDE [Suspect]
     Active Substance: LEFLUNOMIDE
     Indication: Product used for unknown indication
     Route: 065

REACTIONS (2)
  - Renal aplasia [Unknown]
  - Paternal exposure timing unspecified [Unknown]
